FAERS Safety Report 14576917 (Version 1)
Quarter: 2018Q1

REPORT INFORMATION
  Report Type: Spontaneous
  Country: US (occurrence: US)
  Receive Date: 20180224
  Receipt Date: 20180224
  Transmission Date: 20180509
  Serious: Yes (Hospitalization)
  Sender: FDA-Public Use
  Company Number: None

PATIENT
  Age: 55 Year
  Weight: 50.4 kg

DRUGS (1)
  1. CISPLATIN. [Suspect]
     Active Substance: CISPLATIN
     Dates: end: 20180123

REACTIONS (5)
  - Weight decreased [None]
  - Nausea [None]
  - Hypomagnesaemia [None]
  - Decreased appetite [None]
  - Hypokalaemia [None]

NARRATIVE: CASE EVENT DATE: 20180130
